FAERS Safety Report 9190066 (Version 1)
Quarter: 2013Q1

REPORT INFORMATION
  Report Type: Spontaneous
  Country: US (occurrence: US)
  Receive Date: 20130326
  Receipt Date: 20130326
  Transmission Date: 20140127
  Serious: Yes (Hospitalization, Other)
  Sender: FDA-Public Use
  Company Number: US-PFIZER INC-2013096344

PATIENT
  Age: 36 Year
  Sex: Female
  Weight: 54.42 kg

DRUGS (3)
  1. SUTENT [Suspect]
     Indication: NEUROENDOCRINE TUMOUR
     Dosage: 50 MG, 1X/DAY
     Dates: start: 20130216
  2. AMBIEN [Concomitant]
     Indication: SLEEP DISORDER
     Dosage: 10 MG, 1X/DAY
  3. ZOFRAN [Concomitant]
     Indication: NAUSEA
     Dosage: 4 MG, 1X/DAY

REACTIONS (1)
  - Cerebrovascular accident [Unknown]
